FAERS Safety Report 16420422 (Version 2)
Quarter: 2019Q3

REPORT INFORMATION
  Report Type: Report from Study
  Country: CA (occurrence: CA)
  Receive Date: 20190612
  Receipt Date: 20190802
  Transmission Date: 20191004
  Serious: Yes (Other)
  Sender: FDA-Public Use
  Company Number: CA-JNJFOC-20190614700

PATIENT
  Age: 26 Year
  Sex: Female
  Weight: 66 kg

DRUGS (1)
  1. STELARA [Suspect]
     Active Substance: USTEKINUMAB
     Indication: CROHN^S DISEASE
     Dosage: STRENGTH = 90 MG
     Route: 058
     Dates: start: 20190410

REACTIONS (5)
  - General physical health deterioration [Unknown]
  - Abdominal pain [Unknown]
  - Frequent bowel movements [Unknown]
  - Clostridium difficile infection [Recovered/Resolved]
  - Thyroidectomy [Recovering/Resolving]

NARRATIVE: CASE EVENT DATE: 2019
